FAERS Safety Report 9667226 (Version 1)
Quarter: 2013Q4

REPORT INFORMATION
  Report Type: Spontaneous
  Country: US (occurrence: US)
  Receive Date: 20131104
  Receipt Date: 20131104
  Transmission Date: 20140711
  Serious: No
  Sender: FDA-Public Use
  Company Number: US-BIOGENIDEC-2013BI090414

PATIENT
  Sex: Female
  Weight: 43 kg

DRUGS (6)
  1. TECFIDERA [Suspect]
     Indication: MULTIPLE SCLEROSIS
     Route: 048
     Dates: start: 20130716
  2. PEPCID [Concomitant]
  3. VITAMIN D2 [Concomitant]
  4. LYRICA [Concomitant]
  5. LAMICTAL [Concomitant]
  6. KLONOPIN [Concomitant]

REACTIONS (3)
  - Hypoaesthesia [Recovered/Resolved]
  - Headache [Recovered/Resolved]
  - Multiple sclerosis relapse [Recovered/Resolved]
